FAERS Safety Report 10701890 (Version 4)
Quarter: 2016Q2

REPORT INFORMATION
  Report Type: Spontaneous
  Country: US (occurrence: US)
  Receive Date: 20150109
  Receipt Date: 20160405
  Transmission Date: 20160815
  Serious: Yes (Hospitalization, Disabling, Other)
  Sender: FDA-Public Use
  Company Number: US-009507513-1501USA002252

PATIENT
  Sex: Female

DRUGS (2)
  1. ALENDRONATE SODIUM. [Suspect]
     Active Substance: ALENDRONATE SODIUM
     Dosage: 70 MG, QW
     Route: 048
     Dates: start: 20110509, end: 20140114
  2. FOSAMAX [Suspect]
     Active Substance: ALENDRONATE SODIUM
     Indication: OSTEOPOROSIS
     Dosage: UNK UNK, QW
     Route: 048
     Dates: start: 1999, end: 201105

REACTIONS (17)
  - Myocardial infarction [Unknown]
  - Coronary artery disease [Unknown]
  - Arthralgia [Unknown]
  - Hypothyroidism [Not Recovered/Not Resolved]
  - Depression [Unknown]
  - Psoriasis [Unknown]
  - Cholecystectomy [Unknown]
  - Fall [Unknown]
  - Hypertension [Not Recovered/Not Resolved]
  - Femur fracture [Recovered/Resolved]
  - Nasopharyngitis [Unknown]
  - Shoulder arthroplasty [Unknown]
  - Shoulder arthroplasty [Unknown]
  - Blood cholesterol increased [Not Recovered/Not Resolved]
  - Intervertebral disc protrusion [Unknown]
  - Breast cancer [Unknown]
  - Osteoarthritis [Unknown]

NARRATIVE: CASE EVENT DATE: 1999
